FAERS Safety Report 8531806-5 (Version None)
Quarter: 2012Q3

REPORT INFORMATION
  Report Type: 
  Country: None (occurrence: None)
  Receive Date: 20120723
  Receipt Date: 20120709
  Transmission Date: 20120928
  Serious: No
  Sender: FDA-Public Use
  Company Number: US-ASTRAZENECA-2012SE46852

PATIENT
  Age: 50 Year
  Sex: Female
  Weight: 49.9 kg

DRUGS (7)
  1. NEXIUM [Suspect]
     Indication: GASTROINTESTINAL EROSION
     Route: 048
  2. NEXIUM [Suspect]
     Dosage: 30MG
     Route: 048
  3. NEXIUM [Suspect]
     Indication: GASTRITIS
     Route: 048
  4. NEXIUM [Suspect]
     Dosage: 30MG
     Route: 048
  5. TYLENOL PM [Concomitant]
     Indication: OSTEOARTHRITIS
  6. CIPROFLOXACIN HCL [Concomitant]
  7. TYLENOL [Concomitant]
     Indication: OSTEOARTHRITIS

REACTIONS (8)
  - ANXIETY [None]
  - NAUSEA [None]
  - DECREASED APPETITE [None]
  - ABDOMINAL PAIN UPPER [None]
  - SNEEZING [None]
  - DIZZINESS [None]
  - OFF LABEL USE [None]
  - WEIGHT DECREASED [None]
